FAERS Safety Report 15760209 (Version 1)
Quarter: 2018Q4

REPORT INFORMATION
  Report Type: Spontaneous
  Country: US (occurrence: US)
  Receive Date: 20181226
  Receipt Date: 20181226
  Transmission Date: 20190205
  Serious: Yes (Other)
  Sender: FDA-Public Use
  Company Number: US-PFIZER INC-2018527446

PATIENT

DRUGS (1)
  1. IBRANCE [Suspect]
     Active Substance: PALBOCICLIB
     Dosage: UNK

REACTIONS (6)
  - Arthralgia [Unknown]
  - Skin exfoliation [Unknown]
  - Dry skin [Unknown]
  - Joint swelling [Unknown]
  - Palmar-plantar erythrodysaesthesia syndrome [Unknown]
  - Haemarthrosis [Unknown]
